FAERS Safety Report 6439644-4 (Version None)
Quarter: 2009Q4

REPORT INFORMATION
  Report Type: 
  Country: None (occurrence: None)
  Receive Date: 20091110
  Receipt Date: 20091104
  Transmission Date: 20100525
  Serious: Yes (Other)
  Sender: FDA-Public Use
  Company Number: FRVA20090029

PATIENT
  Sex: Female

DRUGS (1)
  1. FROVA [Suspect]
     Indication: MIGRAINE
     Dosage: ORAL
     Route: 048

REACTIONS (1)
  - ANAPHYLACTIC REACTION [None]
